FAERS Safety Report 8921098 (Version 1)
Quarter: 2012Q4

REPORT INFORMATION
  Report Type: 
  Country: SE (occurrence: SE)
  Receive Date: 20121121
  Receipt Date: 20121121
  Transmission Date: 20130627
  Serious: Yes (Hospitalization)
  Sender: FDA-Public Use
  Company Number: SE-PFIZER INC-2012287244

PATIENT
  Age: 72 Year
  Sex: Female
  Weight: 103.8 kg

DRUGS (32)
  1. GENOTROPIN [Suspect]
     Indication: GROWTH HORMONE DEFICIENCY
     Dosage: 0.4 mg, 1x/day,7 injections/week
     Route: 058
     Dates: start: 20010503
  2. IMIGRAN [Concomitant]
     Indication: HEADACHE
     Dosage: UNK
  3. OXIS [Concomitant]
     Indication: ASTHMA
     Dosage: UNK
  4. EVOREL [Concomitant]
     Indication: FOLLICLE-STIMULATING HORMONE DEFICIENCY
     Dosage: UNK
  5. EVOREL [Concomitant]
     Indication: LUTEINISING HORMONE DEFICIENCY
  6. LASIX [Concomitant]
     Indication: OEDEMA
     Dosage: UNK
     Dates: start: 19850101
  7. REMERON [Concomitant]
     Indication: INSOMNIA
     Dosage: UNK
  8. VI-SIBLIN [Concomitant]
     Indication: CONSTIPATION
     Dosage: UNK
  9. CLARITYN [Concomitant]
     Indication: ALLERGY
     Dosage: UNK
  10. ENOMDAN [Concomitant]
     Indication: VITAMIN DEFICIENCY
     Dosage: UNK
  11. MINIFOM [Concomitant]
     Indication: METEORISM
     Dosage: UNK
     Dates: start: 19900101
  12. KALITABS [Concomitant]
     Indication: HYPOKALEMIA
     Dosage: UNK
     Dates: start: 19900101
  13. CIPRAMIL [Concomitant]
     Indication: DEPRESSIVE DISORDER
     Dosage: UNK
     Dates: start: 19970101
  14. BETOLVEX [Concomitant]
     Indication: VITAMIN B12 DEFICIENCY
     Dosage: UNK
     Dates: start: 19970101
  15. PULMICORT [Concomitant]
     Indication: ASTHMA
     Dosage: UNK
     Dates: start: 19970101
  16. LEVAXIN [Concomitant]
     Indication: HYPOTHYROIDISM
     Dosage: UNK
     Dates: start: 20010531
  17. XENICAL [Concomitant]
     Indication: OBESITY
     Dosage: UNK
     Dates: start: 19991216
  18. CIPROXIN [Concomitant]
     Indication: INFECTION
     Dosage: UNK
     Dates: start: 20011119
  19. STESOLID [Concomitant]
     Indication: DEPRESSIVE DISORDER
     Dosage: UNK
     Dates: start: 20020110
  20. PROPAVAN [Concomitant]
     Indication: SLEEP DISTURBANCE
     Dosage: UNK
     Dates: start: 20020110
  21. DOLCONTIN [Concomitant]
     Indication: NEURALGIA
     Dosage: UNK
     Dates: start: 20020110
  22. DOLCONTIN [Concomitant]
     Indication: NEURITIS
  23. IMOVANE [Concomitant]
     Indication: SLEEP DISTURBANCE
     Dosage: UNK
     Dates: start: 20020110
  24. ALVEDON [Concomitant]
     Indication: HEADACHE
     Dosage: UNK
     Dates: start: 20020110
  25. ETALPHA [Concomitant]
     Indication: VITAMIN D DEFICIENCY
     Dosage: UNK
     Dates: start: 20020204
  26. ZYLORIC ^FAES^ [Concomitant]
     Indication: DISORDERS OF UREA CYCLE METABOLISM
     Dosage: UNK
     Dates: start: 20020628
  27. ENALAPRIL [Concomitant]
     Indication: ESSENTIAL HYPERTENSION
     Dosage: UNK
     Dates: start: 20030301
  28. LANZO [Concomitant]
     Indication: GASTRITIS
     Dosage: UNK
     Dates: start: 20031111
  29. MORFIN [Concomitant]
     Indication: NEURALGIA
     Dosage: UNK
     Dates: start: 20020110
  30. MORFIN [Concomitant]
     Indication: NEURITIS
  31. HYDROCORTONE [Concomitant]
     Indication: ACTH DECREASED
     Dosage: UNK
     Dates: start: 20030416
  32. NORVASC [Concomitant]
     Indication: HYPERTENSION
     Dosage: UNK
     Dates: start: 20030906

REACTIONS (1)
  - Hypertension [Unknown]
